FAERS Safety Report 7868601-6 (Version None)
Quarter: 2011Q4

REPORT INFORMATION
  Report Type: 
  Country: None (occurrence: None)
  Receive Date: 20111028
  Receipt Date: 20101215
  Transmission Date: 20120403
  Serious: No
  Sender: FDA-Public Use
  Company Number: US-AMGEN-USASP2010008287

PATIENT
  Age: 43 Year
  Sex: Male

DRUGS (2)
  1. ENBREL [Suspect]
     Indication: PSORIATIC ARTHROPATHY
  2. ENBREL [Suspect]
     Indication: PSORIASIS
     Dosage: 50 MG, QWK
     Dates: start: 20101203

REACTIONS (9)
  - SKIN EXFOLIATION [None]
  - PRURITUS [None]
  - INJECTION SITE HAEMATOMA [None]
  - PSORIASIS [None]
  - ANAL PRURITUS [None]
  - ARTHRALGIA [None]
  - INJECTION SITE ERYTHEMA [None]
  - MUSCLE SPASTICITY [None]
  - INJECTION SITE PAIN [None]
